FAERS Safety Report 8492412-4 (Version None)
Quarter: 2012Q2

REPORT INFORMATION
  Report Type: 
  Country: None (occurrence: None)
  Receive Date: 20120629
  Receipt Date: 20120629
  Transmission Date: 20120825
  Serious: No
  Sender: FDA-Public Use
  Company Number: None

PATIENT
  Age: 50 Year
  Sex: Male
  Weight: 83 kg

DRUGS (1)
  1. IOPAMIDOL [Suspect]
     Indication: COMPUTERISED TOMOGRAM
     Dosage: 95 ML ONCE IV
     Route: 042
     Dates: start: 20120511, end: 20120511

REACTIONS (2)
  - THROAT IRRITATION [None]
  - URTICARIA [None]
